FAERS Safety Report 14111241 (Version 1)
Quarter: 2017Q4

REPORT INFORMATION
  Report Type: Report from Study
  Country: CA (occurrence: CA)
  Receive Date: 20171020
  Receipt Date: 20171020
  Transmission Date: 20180321
  Serious: Yes (Death)
  Sender: FDA-Public Use
  Company Number: PHHY2017CA084622

PATIENT
  Sex: Female

DRUGS (1)
  1. GLEEVEC [Suspect]
     Active Substance: IMATINIB MESYLATE
     Indication: GASTROINTESTINAL STROMAL TUMOUR
     Dosage: 400 MG, QD
     Route: 048
     Dates: start: 201704

REACTIONS (6)
  - Death [Fatal]
  - Pyrexia [Unknown]
  - Diarrhoea [Unknown]
  - Dysgeusia [Unknown]
  - Dry mouth [Unknown]
  - Fatigue [Unknown]
